FAERS Safety Report 9492843 (Version 3)
Quarter: 2013Q4

REPORT INFORMATION
  Report Type: Spontaneous
  Country: TW (occurrence: TW)
  Receive Date: 20130831
  Receipt Date: 20131109
  Transmission Date: 20140711
  Serious: Yes (Hospitalization, Other)
  Sender: FDA-Public Use
  Company Number: TW-AMGEN-TWNSP2013061190

PATIENT
  Age: 57 Year
  Sex: Female

DRUGS (1)
  1. PROLIA [Suspect]
     Indication: PRODUCT USED FOR UNKNOWN INDICATION
     Dosage: 120
     Route: 065
     Dates: start: 201305, end: 201305

REACTIONS (4)
  - Fall [Unknown]
  - Contusion [Unknown]
  - Atypical femur fracture [Recovered/Resolved]
  - Pain in extremity [Unknown]
